FAERS Safety Report 21468884 (Version 2)
Quarter: 2022Q4

REPORT INFORMATION
  Report Type: Report from Study
  Country: AU (occurrence: AU)
  Receive Date: 20221018
  Receipt Date: 20221020
  Transmission Date: 20230113
  Serious: Yes (Hospitalization, Other)
  Sender: FDA-Public Use
  Company Number: AU-ABBVIE-4162168

PATIENT
  Sex: Male

DRUGS (2)
  1. CARBIDOPA\LEVODOPA [Suspect]
     Active Substance: CARBIDOPA\LEVODOPA
     Indication: Parkinson^s disease
     Dates: start: 20171023
  2. CARBIDOPA\LEVODOPA [Suspect]
     Active Substance: CARBIDOPA\LEVODOPA
     Dosage: DUODOPA 100 ML GEL CASSETTE, 24 HOURS DURATION
     Route: 050
     Dates: start: 20171023

REACTIONS (6)
  - Spinal operation [Unknown]
  - Hospitalisation [Unknown]
  - Gait disturbance [Unknown]
  - Device issue [Recovered/Resolved]
  - Constipation [Unknown]
  - Stoma site discharge [Unknown]
